FAERS Safety Report 21987487 (Version 1)
Quarter: 2023Q1

REPORT INFORMATION
  Report Type: Spontaneous
  Country: GB (occurrence: None)
  Receive Date: 20230214
  Receipt Date: 20230214
  Transmission Date: 20230417
  Serious: Yes (Hospitalization)
  Sender: FDA-Public Use
  Company Number: None

PATIENT
  Age: 39 Year
  Sex: Male

DRUGS (7)
  1. METFORMIN [Suspect]
     Active Substance: METFORMIN HYDROCHLORIDE
     Indication: Product used for unknown indication
  2. ATORVASTATIN [Suspect]
     Active Substance: ATORVASTATIN
     Indication: Product used for unknown indication
     Route: 048
  3. CITALOPRAM [Concomitant]
     Active Substance: CITALOPRAM HYDROBROMIDE
     Indication: Product used for unknown indication
  4. LEVEMIR [Concomitant]
     Active Substance: INSULIN DETEMIR
     Indication: Product used for unknown indication
     Dosage: LEVEMIR FLEXPEN 100UNITS/ML 3ML PRE-FILLED PENS
  5. NOVORAPID [Concomitant]
     Active Substance: INSULIN ASPART
     Indication: Product used for unknown indication
     Dosage: NOVORAPID FLEXPEN 100UNITS/ML SOLUTION FOR INJECTION 3ML PRE-FILLED PENS
  6. SENNA LEAF [Concomitant]
     Active Substance: SENNA LEAF
     Indication: Product used for unknown indication
  7. LAXIDO ORANGE [Concomitant]
     Indication: Product used for unknown indication
     Dosage: LAXIDO ORANGE ORAL POWDER SACHETS SUGAR FREE 1 SACHET BD
     Route: 048

REACTIONS (1)
  - Dyspnoea [Recovered/Resolved]
